FAERS Safety Report 5683579-1 (Version None)
Quarter: 2008Q2

REPORT INFORMATION
  Report Type: 
  Country: None (occurrence: None)
  Receive Date: 20080319
  Receipt Date: 20080107
  Transmission Date: 20081010
  Serious: Yes (Disabling)
  Sender: FDA-Public Use
  Company Number: US-WYE-H01985408

PATIENT
  Age: 42 Year
  Sex: Female
  Weight: 110.78 kg

DRUGS (1)
  1. LYBREL [Suspect]
     Indication: CONTRACEPTION
     Dosage: 1 TABLET 1X PER 1 DAY, ORAL
     Route: 048
     Dates: start: 20070901, end: 20071101

REACTIONS (2)
  - FALL [None]
  - THROMBOSIS [None]
